FAERS Safety Report 20918483 (Version 2)
Quarter: 2022Q3

REPORT INFORMATION
  Report Type: Spontaneous
  Country: US (occurrence: US)
  Receive Date: 20220606
  Receipt Date: 20220704
  Transmission Date: 20221027
  Serious: No
  Sender: FDA-Public Use
  Company Number: US-GLAXOSMITHKLINE-US2022084961

PATIENT
  Age: 41 Year
  Sex: Female

DRUGS (1)
  1. TRELEGY ELLIPTA [Suspect]
     Active Substance: FLUTICASONE FUROATE\UMECLIDINIUM BROMIDE\VILANTEROL TRIFENATATE
     Indication: Asthma
     Dosage: 1 PUFF(S), 1D (100/62.5/25MCG)
     Dates: start: 2019, end: 20220427

REACTIONS (5)
  - Adverse drug reaction [Unknown]
  - Visual impairment [Recovered/Resolved]
  - Halo vision [Recovered/Resolved]
  - Photophobia [Recovered/Resolved]
  - Weight increased [Recovered/Resolved]

NARRATIVE: CASE EVENT DATE: 20220425
